FAERS Safety Report 4565267-8 (Version None)
Quarter: 2005Q1

REPORT INFORMATION
  Report Type: 
  Country: None (occurrence: None)
  Receive Date: 20050131
  Receipt Date: 20050119
  Transmission Date: 20050727
  Serious: Yes (Hospitalization)
  Sender: FDA-Public Use
  Company Number: PHEH2005US01194

PATIENT
  Age: 60 Year
  Weight: 56 kg

DRUGS (2)
  1. FOSAMAX [Concomitant]
  2. ZELNORM [Suspect]
     Indication: IRRITABLE BOWEL SYNDROME
     Dosage: 6 MG, BID
     Route: 048

REACTIONS (6)
  - ABDOMINAL DISTENSION [None]
  - ABDOMINAL PAIN [None]
  - CAECUM OPERATION [None]
  - NAUSEA [None]
  - PNEUMATOSIS [None]
  - VOMITING [None]
